FAERS Safety Report 23947195 (Version 1)
Quarter: 2024Q2

REPORT INFORMATION
  Report Type: Spontaneous
  Country: US (occurrence: US)
  Receive Date: 20240606
  Receipt Date: 20240606
  Transmission Date: 20240716
  Serious: No
  Sender: FDA-Public Use
  Company Number: MYC23-00277

PATIENT

DRUGS (3)
  1. VIVJOA [Suspect]
     Active Substance: OTESECONAZOLE
     Indication: Vulvovaginal candidiasis
     Dosage: 600 MILLIGRAM, SINGLE, DAY ONE
     Route: 048
     Dates: start: 20231005, end: 20231005
  2. VIVJOA [Suspect]
     Active Substance: OTESECONAZOLE
     Dosage: 450 MILLIGRAM, SINGLE, DAY TWO
     Route: 048
     Dates: start: 20231006, end: 20231006
  3. VIVJOA [Suspect]
     Active Substance: OTESECONAZOLE
     Dosage: 150 MILLIGRAM, WEEKLY, STARTING ON DAY 14
     Route: 048
     Dates: start: 20231018, end: 20231122

REACTIONS (1)
  - Blood sodium decreased [Recovered/Resolved]

NARRATIVE: CASE EVENT DATE: 20231205
